FAERS Safety Report 5330821-2 (Version None)
Quarter: 2007Q2

REPORT INFORMATION
  Report Type: 
  Country: None (occurrence: None)
  Receive Date: 20070516
  Receipt Date: 20070504
  Transmission Date: 20071010
  Serious: Yes (Death, Hospitalization)
  Sender: FDA-Public Use
  Company Number: 2007BI003939

PATIENT
  Age: 71 Year
  Sex: Female

DRUGS (11)
  1. AVONEX [Suspect]
     Indication: MULTIPLE SCLEROSIS
     Dosage: IM
     Route: 030
     Dates: start: 19960101
  2. AVONEX [Suspect]
     Indication: MULTIPLE SCLEROSIS
     Dosage: 30 UG; QW; IM
     Route: 030
     Dates: end: 20070301
  3. NAPROXEN [Concomitant]
  4. MIRALAX [Concomitant]
  5. DOXEPIN HCL [Concomitant]
  6. TYLENOL [Concomitant]
  7. EXTENDED RELIEF [Concomitant]
  8. AMANTADINE HCL [Concomitant]
  9. ENABLEX [Concomitant]
  10. LIPITOR [Concomitant]
  11. ASPIRIN LOW STRENGTH [Concomitant]

REACTIONS (8)
  - CARDIOMYOPATHY [None]
  - CARDIOTOXICITY [None]
  - HEMIPARESIS [None]
  - JOINT SWELLING [None]
  - MYOCARDIAL INFARCTION [None]
  - NO THERAPEUTIC RESPONSE [None]
  - NUCLEAR MAGNETIC RESONANCE IMAGING BRAIN ABNORMAL [None]
  - PULMONARY OEDEMA [None]
